FAERS Safety Report 9385157 (Version 2)
Quarter: 2013Q3

REPORT INFORMATION
  Report Type: Spontaneous
  Country: DE (occurrence: DE)
  Receive Date: 20130705
  Receipt Date: 20130823
  Transmission Date: 20140515
  Serious: Yes (Hospitalization, Other)
  Sender: FDA-Public Use
  Company Number: DE-PFIZER INC-2013176097

PATIENT
  Age: 71 Year
  Sex: Female
  Weight: 115 kg

DRUGS (8)
  1. LYRICA [Suspect]
     Indication: NEURALGIA
     Dosage: 75 MG, 1X/DAY
  2. LYRICA [Suspect]
     Dosage: 75 MG, 2X/DAY
     Route: 048
     Dates: start: 2011
  3. LYRICA [Suspect]
     Dosage: 75 MG, 2X/DAY
     Dates: start: 2012, end: 20130203
  4. PIRETANIDE [Concomitant]
     Dosage: 3 MG, 1X/DAY (IN THE MORNING)
  5. VALSARTAN [Concomitant]
     Dosage: 160 MG, 1X/DAY (IN THE MORNING)
  6. LERCANIDIPINE [Concomitant]
     Dosage: 10 MG, 1X/DAY (IN THE MORNING)
  7. CITALOPRAM [Concomitant]
     Dosage: 20 MG, 1X/DAY ( IN THE MORNING)
  8. PANTOPRAZOLE [Concomitant]
     Dosage: 20 MG, 1X/DAY ( IN THE EVENING)

REACTIONS (11)
  - Transient ischaemic attack [Unknown]
  - Fall [Recovered/Resolved]
  - Radius fracture [Unknown]
  - Lung infection [Unknown]
  - Gait disturbance [Recovered/Resolved]
  - Dizziness [Recovered/Resolved]
  - Memory impairment [Recovered/Resolved]
  - Hyperacusis [Recovered/Resolved]
  - Tremor [Recovered/Resolved]
  - Visual impairment [Unknown]
  - Productive cough [Unknown]
